FAERS Safety Report 25819909 (Version 1)
Quarter: 2025Q3

REPORT INFORMATION
  Report Type: Spontaneous
  Country: CN (occurrence: CN)
  Receive Date: 20250918
  Receipt Date: 20250918
  Transmission Date: 20251021
  Serious: Yes (Hospitalization)
  Sender: MERCK SHARP & DOHME LLC
  Company Number: CN-009507513-2329885

PATIENT
  Age: 90 Year
  Sex: Female
  Weight: 53 kg

DRUGS (2)
  1. ERTAPENEM [Suspect]
     Active Substance: ERTAPENEM
     Indication: Anti-infective therapy
     Route: 041
     Dates: start: 20250828, end: 20250902
  2. SODIUM CHLORIDE [Concomitant]
     Active Substance: SODIUM CHLORIDE
     Indication: Medication dilution
     Route: 041
     Dates: start: 20250828, end: 20250902

REACTIONS (5)
  - Dysarthria [Recovering/Resolving]
  - Poor quality sleep [Unknown]
  - Mental status changes [Recovering/Resolving]
  - Logorrhoea [Unknown]
  - Hallucination [Recovering/Resolving]

NARRATIVE: CASE EVENT DATE: 20250829
